FAERS Safety Report 5820422-1 (Version None)
Quarter: 2008Q3

REPORT INFORMATION
  Report Type: 
  Country: None (occurrence: None)
  Receive Date: 20080724
  Receipt Date: 20070718
  Transmission Date: 20090109
  Serious: No
  Sender: FDA-Public Use
  Company Number: A0664824A

PATIENT
  Sex: Male

DRUGS (5)
  1. AVANDIA [Suspect]
     Indication: DRUG USE FOR UNKNOWN INDICATION
     Dosage: 4MG TWICE PER DAY
     Route: 048
     Dates: start: 20060322, end: 20070601
  2. LANTUS [Concomitant]
  3. MECLIZINE [Concomitant]
  4. NASONEX [Concomitant]
  5. VIAGRA [Concomitant]

REACTIONS (1)
  - HEART RATE INCREASED [None]
